FAERS Safety Report 20245410 (Version 1)
Quarter: 2021Q4

REPORT INFORMATION
  Report Type: Spontaneous
  Country: US (occurrence: US)
  Receive Date: 20211229
  Receipt Date: 20211229
  Transmission Date: 20220303
  Serious: Yes (Other)
  Sender: FDA-Public Use
  Company Number: US-PFIZER INC-202101830394

PATIENT
  Age: 58 Year
  Sex: Male
  Weight: 83.91 kg

DRUGS (2)
  1. XELJANZ [Suspect]
     Active Substance: TOFACITINIB CITRATE
     Indication: Rheumatoid arthritis
     Dosage: 5 MG, 2X/DAY
     Dates: start: 202003
  2. VITAMIN D PLUS [Concomitant]
     Dosage: UNK

REACTIONS (1)
  - Tonsil cancer [Unknown]

NARRATIVE: CASE EVENT DATE: 20200301
